FAERS Safety Report 6642304-8 (Version None)
Quarter: 2010Q1

REPORT INFORMATION
  Report Type: 
  Country: None (occurrence: None)
  Receive Date: 20100319
  Receipt Date: 20100310
  Transmission Date: 20100710
  Serious: No
  Sender: FDA-Public Use
  Company Number: US-BAYER-201016524NA

PATIENT
  Age: 37 Year
  Sex: Female
  Weight: 64 kg

DRUGS (1)
  1. MAGNEVIST [Suspect]
     Indication: NUCLEAR MAGNETIC RESONANCE IMAGING
     Dosage: 2 ML/SEC INTO LEFT HAND, LINE FLUSHED AND POWER INJECTOR
     Route: 042
     Dates: start: 20100309, end: 20100309

REACTIONS (1)
  - VOMITING [None]
